FAERS Safety Report 9692545 (Version 1)
Quarter: 2013Q4

REPORT INFORMATION
  Report Type: Spontaneous
  Country: US (occurrence: US)
  Receive Date: 20131118
  Receipt Date: 20131118
  Transmission Date: 20140711
  Serious: Yes (Other)
  Sender: FDA-Public Use
  Company Number: US-BAYER-2013-139533

PATIENT
  Age: 27 Year
  Sex: Female
  Weight: 145.13 kg

DRUGS (3)
  1. YASMIN [Suspect]
  2. FLUOCINONIDE [Concomitant]
  3. IBUPROFEN [Concomitant]

REACTIONS (2)
  - Deep vein thrombosis [None]
  - Pulmonary embolism [None]
